FAERS Safety Report 7514781-1 (Version None)
Quarter: 2011Q2

REPORT INFORMATION
  Report Type: 
  Country: None (occurrence: None)
  Receive Date: 20110601
  Receipt Date: 20110524
  Transmission Date: 20111010
  Serious: Yes (Hospitalization)
  Sender: FDA-Public Use
  Company Number: US-US-EMD SERONO, INC.-7009577

PATIENT
  Sex: Male

DRUGS (5)
  1. LISINOPRIL [Concomitant]
     Indication: HYPERTENSION
  2. REBIF [Suspect]
     Indication: MULTIPLE SCLEROSIS
     Route: 058
     Dates: start: 20100525
  3. WATER PILL [Concomitant]
     Indication: HYPERTENSION
  4. REBIF [Suspect]
     Route: 058
  5. SIMVASTATIN [Concomitant]
     Indication: HYPERTENSION

REACTIONS (5)
  - INFLUENZA LIKE ILLNESS [None]
  - DIZZINESS [None]
  - COLD SWEAT [None]
  - CHEST DISCOMFORT [None]
  - DYSURIA [None]
